FAERS Safety Report 8934241 (Version 6)
Quarter: 2013Q2

REPORT INFORMATION
  Report Type: Report from Study
  Country: CA (occurrence: CA)
  Receive Date: 20121129
  Receipt Date: 20130514
  Transmission Date: 20140414
  Serious: Yes (Hospitalization, Other)
  Sender: FDA-Public Use
  Company Number: PHHY2010CA01074

PATIENT
  Age: 73 Year
  Sex: Male

DRUGS (19)
  1. EXJADE [Suspect]
     Indication: MYELODYSPLASTIC SYNDROME
     Dosage: 500 MG, UNK
     Route: 048
     Dates: start: 200901
  2. EXJADE [Suspect]
     Dosage: 1500 MG, QD
     Route: 048
     Dates: start: 20091101
  3. EXJADE [Suspect]
     Dosage: 1500 MG, QD
     Dates: start: 20091210
  4. EXJADE [Suspect]
     Dosage: 1500 MG, QD
     Route: 048
     Dates: end: 20120503
  5. EXJADE [Suspect]
     Dosage: UNK UKN, UNK
     Dates: start: 20120703
  6. EXJADE [Suspect]
     Dosage: 500 MG, UNK
     Route: 048
  7. EXJADE [Suspect]
     Dosage: 500 MG, QD
     Route: 048
     Dates: end: 20130507
  8. ANAGRELIDE [Concomitant]
     Dosage: 0.5 MG, UNK
     Route: 065
  9. RAMIPRIL [Concomitant]
     Indication: BLOOD PRESSURE ABNORMAL
     Dosage: 2.5 MG OD
     Route: 048
  10. RANITIDINE [Concomitant]
     Indication: GASTROINTESTINAL DISORDER
     Dosage: 150 MG, BID
     Route: 048
  11. WARFARIN [Concomitant]
     Dosage: UNK UKN, UNK
     Dates: start: 201101
  12. ASPIRIN [Concomitant]
     Dosage: 81 MG, QD
     Dates: start: 201103
  13. BISOPROLOL [Concomitant]
     Dosage: 5 MG, QD
     Route: 048
  14. FLORINEF [Concomitant]
     Dosage: 0.1 MG, QD
     Route: 048
  15. NITRO [Concomitant]
     Dosage: 0.4 MG, UNK
  16. HYDROCHLOROTHIAZIDE [Concomitant]
     Dosage: UNK UKN, UNK
  17. FUROSEMIDE [Concomitant]
     Dosage: UNK UKN, UNK
  18. METOPROLOL [Concomitant]
     Dosage: UNK UKN, UNK
  19. ZYLOPRIM [Concomitant]
     Dosage: UNK UKN, UNK

REACTIONS (59)
  - Chest pain [Unknown]
  - Dyspnoea [Recovering/Resolving]
  - Blood potassium increased [Not Recovered/Not Resolved]
  - Cardiac failure congestive [Unknown]
  - Renal failure [Unknown]
  - Renal impairment [Unknown]
  - Pulmonary congestion [Unknown]
  - Abnormal sensation in eye [Unknown]
  - Cataract [Unknown]
  - Eye disorder [Unknown]
  - Eye pain [Unknown]
  - Visual impairment [Recovering/Resolving]
  - Mobility decreased [Unknown]
  - Laboratory test abnormal [Unknown]
  - Tremor [Unknown]
  - Hallucination [Unknown]
  - Aphagia [Unknown]
  - Skin burning sensation [Unknown]
  - Chills [Unknown]
  - Sensitivity of teeth [Recovered/Resolved]
  - Gingival pain [Recovered/Resolved]
  - Night sweats [Unknown]
  - Back pain [Not Recovered/Not Resolved]
  - Hypoaesthesia [Not Recovered/Not Resolved]
  - Paraesthesia [Recovered/Resolved]
  - Full blood count decreased [Unknown]
  - Pain in extremity [Not Recovered/Not Resolved]
  - Insomnia [Unknown]
  - Gait disturbance [Unknown]
  - Tooth disorder [Unknown]
  - Condition aggravated [Unknown]
  - Jaw disorder [Unknown]
  - Dysphagia [Unknown]
  - Oropharyngeal pain [Unknown]
  - Cough [Unknown]
  - Dysphonia [Unknown]
  - Hyperhidrosis [Recovering/Resolving]
  - Cardiac disorder [Unknown]
  - Feeling abnormal [Unknown]
  - Muscular weakness [Unknown]
  - Nervousness [Unknown]
  - Influenza [Recovering/Resolving]
  - Muscle spasms [Unknown]
  - Weight decreased [Unknown]
  - Lethargy [Unknown]
  - Asthenia [Unknown]
  - Vision blurred [Unknown]
  - Abdominal discomfort [Recovering/Resolving]
  - Constipation [Unknown]
  - Serum ferritin increased [Not Recovered/Not Resolved]
  - Headache [Unknown]
  - Blood iron increased [Unknown]
  - Fatigue [Unknown]
  - Vomiting [Recovering/Resolving]
  - Platelet count decreased [Unknown]
  - Nausea [Recovering/Resolving]
  - Dizziness [Unknown]
  - Pain [Unknown]
  - Pyrexia [Unknown]
